FAERS Safety Report 13885505 (Version 3)
Quarter: 2017Q3

REPORT INFORMATION
  Report Type: Spontaneous
  Country: DE (occurrence: DE)
  Receive Date: 20170821
  Receipt Date: 20170905
  Transmission Date: 20171127
  Serious: Yes (Life-Threatening, Hospitalization, Other)
  Sender: FDA-Public Use
  Company Number: DE-TEVA-799051GER

PATIENT
  Age: 25 Year

DRUGS (2)
  1. QUETIAPINE. [Suspect]
     Active Substance: QUETIAPINE
     Dosage: 10 GRAM DAILY; 150 MG/KG
     Route: 065
  2. AMITRIPTYLINE [Suspect]
     Active Substance: AMITRIPTYLINE
     Dosage: 5.5 GRAM DAILY; 85 MG/KG
     Route: 065

REACTIONS (6)
  - Arrhythmia [Recovered/Resolved]
  - Overdose [Recovered/Resolved]
  - Anticholinergic syndrome [Recovering/Resolving]
  - Shock [Recovered/Resolved]
  - Ventricular tachycardia [Recovered/Resolved]
  - Toxicity to various agents [Recovered/Resolved]
